FAERS Safety Report 4407820-8 (Version None)
Quarter: 2004Q3

REPORT INFORMATION
  Report Type: 
  Country: None (occurrence: None)
  Receive Date: 20040726
  Receipt Date: 20040721
  Transmission Date: 20050211
  Serious: Yes (Other)
  Sender: FDA-Public Use
  Company Number: US-GLAXOSMITHKLINE-A0519523A

PATIENT
  Age: 35 Year
  Sex: Female

DRUGS (3)
  1. LAMOTRIGINE [Suspect]
     Indication: EPILEPSY
     Dosage: 300MG TWICE PER DAY
     Dates: start: 20040106, end: 20040222
  2. LAMOTRIGINE [Suspect]
     Dosage: 200MG TWICE PER DAY
     Dates: start: 20031114, end: 20040105
  3. LAMOTRIGINE [Suspect]
     Dosage: 450MG PER DAY
     Dates: end: 20031113

REACTIONS (2)
  - ABORTION SPONTANEOUS [None]
  - MYOCLONUS [None]
